FAERS Safety Report 7718265-7 (Version None)
Quarter: 2011Q3

REPORT INFORMATION
  Report Type: 
  Country: None (occurrence: None)
  Receive Date: 20110830
  Receipt Date: 20110822
  Transmission Date: 20111222
  Serious: Yes (Other)
  Sender: FDA-Public Use
  Company Number: PHHY2011US21289

PATIENT
  Sex: Female

DRUGS (4)
  1. AMBIEN [Concomitant]
     Dosage: 10 MG, UNK
  2. DETROL LA [Concomitant]
  3. BACLOFEN [Concomitant]
  4. GILENYA [Suspect]
     Indication: MULTIPLE SCLEROSIS
     Dosage: 0.5 MG, QD
     Route: 048
     Dates: start: 20101206

REACTIONS (3)
  - PERONEAL NERVE PALSY [None]
  - MUSCULAR WEAKNESS [None]
  - MULTIPLE SCLEROSIS RELAPSE [None]
